FAERS Safety Report 9712630 (Version 2)
Quarter: 2014Q2

REPORT INFORMATION
  Report Type: Spontaneous
  Country: US (occurrence: US)
  Receive Date: 20131126
  Receipt Date: 20140510
  Transmission Date: 20141212
  Serious: No
  Sender: FDA-Public Use
  Company Number: US-BRISTOL-MYERS SQUIBB COMPANY-19209121

PATIENT
  Age: 64 Year
  Sex: Male
  Weight: 113.38 kg

DRUGS (6)
  1. BYDUREON [Suspect]
     Indication: TYPE 2 DIABETES MELLITUS
     Dosage: EXP DATE: JUN16
     Route: 058
     Dates: start: 20130808
  2. METFORMIN HCL [Suspect]
  3. GLIPIZIDE [Suspect]
  4. ACTOS [Suspect]
  5. SIMVASTATIN [Concomitant]
  6. TOPROL XL [Concomitant]

REACTIONS (4)
  - Blood glucose increased [Not Recovered/Not Resolved]
  - Drug dose omission [Unknown]
  - Underdose [Unknown]
  - Product quality issue [Unknown]
